FAERS Safety Report 6893737-6 (Version None)
Quarter: 2010Q3

REPORT INFORMATION
  Report Type: 
  Country: None (occurrence: None)
  Receive Date: 20100802
  Receipt Date: 20100723
  Transmission Date: 20110219
  Serious: Yes (Hospitalization)
  Sender: FDA-Public Use
  Company Number: US-BIOGENIDEC-2010BI002292

PATIENT
  Age: 51 Year
  Sex: Male
  Weight: 81 kg

DRUGS (2)
  1. TYSABRI [Suspect]
     Indication: MULTIPLE SCLEROSIS
     Route: 042
     Dates: end: 20050210
  2. TYSABRI [Suspect]
     Route: 042
     Dates: start: 20070419

REACTIONS (1)
  - AORTIC ANEURYSM [None]
